FAERS Safety Report 8146938-3 (Version None)
Quarter: 2012Q1

REPORT INFORMATION
  Report Type: 
  Country: None (occurrence: None)
  Receive Date: 20120217
  Receipt Date: 20120214
  Transmission Date: 20120608
  Serious: Yes (Other)
  Sender: FDA-Public Use
  Company Number: MX-ABBOTT-12P-107-0903342-00

PATIENT
  Age: 11 Year
  Sex: Female
  Weight: 42.8 kg

DRUGS (1)
  1. EPIVAL ER [Suspect]
     Indication: NERVOUS SYSTEM DISORDER
     Dosage: 750 MG UNKNOWN FREQUENCY
     Dates: start: 20100205, end: 20120130

REACTIONS (2)
  - VASCULAR PURPURA [None]
  - THROMBOPHLEBITIS [None]
